FAERS Safety Report 4293877-4 (Version None)
Quarter: 2004Q1

REPORT INFORMATION
  Report Type: 
  Country: None (occurrence: None)
  Receive Date: 20040211
  Receipt Date: 20040129
  Transmission Date: 20041129
  Serious: Yes (Death)
  Sender: FDA-Public Use
  Company Number: 2004006250

PATIENT
  Age: 77 Year
  Sex: Male

DRUGS (1)
  1. DOXAZOSIN (DOXAZOSIN) [Suspect]
     Indication: BENIGN PROSTATIC HYPERPLASIA
     Dosage: 4 MG (DAILY), ORAL
     Route: 048
     Dates: start: 19980301, end: 20031003

REACTIONS (2)
  - LUNG NEOPLASM MALIGNANT [None]
  - PROSTATE CANCER [None]
